FAERS Safety Report 25670446 (Version 1)
Quarter: 2025Q3

REPORT INFORMATION
  Report Type: Spontaneous
  Country: US (occurrence: US)
  Receive Date: 20250812
  Receipt Date: 20250812
  Transmission Date: 20251021
  Serious: No
  Sender: BIOMARIN
  Company Number: US-BIOMARINAP-US-2025-167941

PATIENT
  Sex: Male

DRUGS (4)
  1. PALYNZIQ [Suspect]
     Active Substance: PEGVALIASE-PQPZ
     Indication: Product used for unknown indication
  2. PALYNZIQ [Suspect]
     Active Substance: PEGVALIASE-PQPZ
  3. PALYNZIQ [Suspect]
     Active Substance: PEGVALIASE-PQPZ
  4. PALYNZIQ [Suspect]
     Active Substance: PEGVALIASE-PQPZ
     Dosage: 40 MILLIGRAM, QD
     Dates: end: 202502

REACTIONS (2)
  - Inflammation [Recovered/Resolved]
  - Arthralgia [Recovered/Resolved]

NARRATIVE: CASE EVENT DATE: 20250201
